FAERS Safety Report 8620574-4 (Version None)
Quarter: 2012Q3

REPORT INFORMATION
  Report Type: 
  Country: None (occurrence: None)
  Receive Date: 20120824
  Receipt Date: 20120815
  Transmission Date: 20120928
  Serious: Yes (Other)
  Sender: FDA-Public Use
  Company Number: US-ACTELION-A-NJ2012-70016

PATIENT
  Age: 51 Year
  Sex: Female

DRUGS (3)
  1. COUMADIN [Concomitant]
  2. SILDENAFIL [Concomitant]
  3. EPOPROSTENOL SODIUM [Suspect]
     Indication: PULMONARY ARTERIAL HYPERTENSION
     Dosage: 5 NG/KG, PER MIN
     Route: 041
     Dates: start: 20120521

REACTIONS (4)
  - LIVER DISORDER [None]
  - DECREASED APPETITE [None]
  - CONFUSIONAL STATE [None]
  - CONCOMITANT DISEASE AGGRAVATED [None]
